FAERS Safety Report 9934262 (Version 3)
Quarter: 2014Q2

REPORT INFORMATION
  Report Type: Spontaneous
  Country: IT (occurrence: IT)
  Receive Date: 20140228
  Receipt Date: 20140410
  Transmission Date: 20141212
  Serious: Yes (Other)
  Sender: FDA-Public Use
  Company Number: PHHY2014IT024525

PATIENT
  Age: 37 Year
  Sex: Female

DRUGS (9)
  1. EXJADE [Suspect]
     Indication: THALASSAEMIA BETA
     Dosage: 1250 MG, DAILY
     Route: 048
     Dates: start: 20130924, end: 20131024
  2. SINTROM [Suspect]
     Indication: THROMBOSIS
     Dosage: UNK UKN, (1/4 TABLET ON TUESDAY AND 3/4 TABLET ON FRIDAY)
     Dates: end: 20131024
  3. SINTROM [Suspect]
     Dosage: UNK UKN, UNK
  4. ONCO CARBIDE [Concomitant]
     Dosage: UNK UKN, UNK
  5. DELTACORTENE [Concomitant]
     Dosage: UNK UKN, UNK
  6. DIBASE [Concomitant]
     Dosage: UNK UKN, UNK
  7. ALENDROS [Concomitant]
     Dosage: UNK UKN, UNK
  8. INSULIN [Concomitant]
     Dosage: UNK UKN, UPON NEEDED
  9. FOLIDEX [Concomitant]
     Dosage: UNK UKN, UNK

REACTIONS (4)
  - Ecchymosis [Recovered/Resolved]
  - Petechiae [Recovered/Resolved]
  - International normalised ratio increased [Recovered/Resolved]
  - Gingival bleeding [Recovered/Resolved]
